FAERS Safety Report 10396693 (Version 2)
Quarter: 2014Q3

REPORT INFORMATION
  Report Type: Spontaneous
  Country: US (occurrence: US)
  Receive Date: 20140820
  Receipt Date: 20140910
  Transmission Date: 20150326
  Serious: Yes (Hospitalization)
  Sender: FDA-Public Use
  Company Number: US-GLAXOSMITHKLINE-A1085002A

PATIENT
  Age: 54 Year
  Sex: Male

DRUGS (15)
  1. LOVAZA [Suspect]
     Active Substance: OMEGA-3-ACID ETHYL ESTERS
     Indication: BLOOD CHOLESTEROL
     Dosage: 2G TWICE PER DAY
     Route: 048
     Dates: start: 20140402
  2. AMLODIPINE [Concomitant]
     Active Substance: AMLODIPINE BESYLATE
  3. FUROSEMIDE. [Concomitant]
     Active Substance: FUROSEMIDE
  4. ALPRAZOLAM. [Concomitant]
     Active Substance: ALPRAZOLAM
  5. PLAVIX [Concomitant]
     Active Substance: CLOPIDOGREL BISULFATE
  6. ALLOPURINOL. [Concomitant]
     Active Substance: ALLOPURINOL
  7. LOVASTATIN. [Concomitant]
     Active Substance: LOVASTATIN
  8. SPIRONOLACTONE. [Concomitant]
     Active Substance: SPIRONOLACTONE
  9. K-DUR [Concomitant]
     Active Substance: POTASSIUM CHLORIDE
  10. COREG CR [Suspect]
     Active Substance: CARVEDILOL PHOSPHATE
     Indication: CARDIAC FAILURE CONGESTIVE
     Dosage: 20MG PER DAY
     Route: 048
  11. RANEXA [Concomitant]
     Active Substance: RANOLAZINE
  12. NYSTATIN. [Concomitant]
     Active Substance: NYSTATIN
  13. AMIODARONE [Concomitant]
     Active Substance: AMIODARONE
  14. ASPIRIN. [Concomitant]
     Active Substance: ASPIRIN
  15. ZETIA [Concomitant]
     Active Substance: EZETIMIBE

REACTIONS (2)
  - Palpitations [Unknown]
  - Hypertension [Unknown]

NARRATIVE: CASE EVENT DATE: 20140713
